FAERS Safety Report 18312483 (Version 1)
Quarter: 2020Q3

REPORT INFORMATION
  Report Type: Report from Study
  Country: US (occurrence: US)
  Receive Date: 20200925
  Receipt Date: 20200925
  Transmission Date: 20201103
  Serious: Yes (Hospitalization)
  Sender: FDA-Public Use
  Company Number: US-BAYER-2020-200701

PATIENT
  Age: 55 Year
  Sex: Female
  Weight: 79.37 kg

DRUGS (1)
  1. STIVARGA [Suspect]
     Active Substance: REGORAFENIB
     Indication: APPENDIX CANCER
     Dosage: DAILY DOSE 120 MG FOR 21 DAYS
     Route: 048
     Dates: start: 20200901

REACTIONS (2)
  - Hospitalisation [None]
  - Malaise [None]
